FAERS Safety Report 10476321 (Version 5)
Quarter: 2016Q4

REPORT INFORMATION
  Report Type: Spontaneous
  Country: US (occurrence: US)
  Receive Date: 20140925
  Receipt Date: 20161227
  Transmission Date: 20170206
  Serious: No
  Sender: FDA-Public Use
  Company Number: US-PFIZER INC-2014261688

PATIENT
  Age: 59 Year
  Sex: Female
  Weight: 63.49 kg

DRUGS (7)
  1. LYRICA [Suspect]
     Active Substance: PREGABALIN
     Indication: PAIN
  2. LYRICA [Suspect]
     Active Substance: PREGABALIN
     Indication: TRIGEMINAL NEURALGIA
  3. LYRICA [Suspect]
     Active Substance: PREGABALIN
     Indication: ARTERIOVENOUS MALFORMATION
  4. LYRICA [Suspect]
     Active Substance: PREGABALIN
     Indication: PAIN
     Dosage: 75 MG, 3X/DAY
     Route: 048
     Dates: start: 2006
  5. LYRICA [Suspect]
     Active Substance: PREGABALIN
     Indication: MIGRAINE
  6. LYRICA [Suspect]
     Active Substance: PREGABALIN
     Indication: ROUTINE HEALTH MAINTENANCE
  7. METOPROLOL SUCCINATE. [Concomitant]
     Active Substance: METOPROLOL SUCCINATE
     Dosage: 50 MG, UNK
     Dates: start: 2006

REACTIONS (1)
  - Drug effect incomplete [Recovered/Resolved]
